FAERS Safety Report 21877089 (Version 1)
Quarter: 2023Q1

REPORT INFORMATION
  Report Type: Spontaneous
  Country: US (occurrence: US)
  Receive Date: 20230118
  Receipt Date: 20230118
  Transmission Date: 20230418
  Serious: Yes (Other)
  Sender: FDA-Public Use
  Company Number: US-drreddys-LIT/USA/23/0159920

PATIENT
  Age: 63 Year
  Sex: Male

DRUGS (1)
  1. MELPHALAN HYDROCHLORIDE [Suspect]
     Active Substance: MELPHALAN HYDROCHLORIDE
     Indication: Product used for unknown indication

REACTIONS (6)
  - Febrile neutropenia [Unknown]
  - Neurotoxicity [Unknown]
  - Encephalopathy [Unknown]
  - Mucosal inflammation [Unknown]
  - Oliguria [Unknown]
  - Neurological decompensation [Unknown]
